FAERS Safety Report 15406990 (Version 1)
Quarter: 2018Q3

REPORT INFORMATION
  Report Type: Spontaneous
  Country: US (occurrence: US)
  Receive Date: 20180919
  Receipt Date: 20180919
  Transmission Date: 20181010
  Serious: No
  Sender: FDA-Public Use
  Company Number: None

PATIENT
  Age: 69 Year
  Sex: Female
  Weight: 68.04 kg

DRUGS (2)
  1. CIPROFLOXACIN 250MG [Suspect]
     Active Substance: CIPROFLOXACIN
     Indication: URINARY TRACT INFECTION
     Dosage: 2 PILLS DAILY
     Dates: start: 20180828, end: 20180829
  2. DAILY VITAMIN [Concomitant]
     Active Substance: VITAMINS

REACTIONS (2)
  - Tendonitis [None]
  - Gait inability [None]

NARRATIVE: CASE EVENT DATE: 20180828
